FAERS Safety Report 21081401 (Version 1)
Quarter: 2022Q3

REPORT INFORMATION
  Report Type: Spontaneous
  Country: US (occurrence: US)
  Receive Date: 20220714
  Receipt Date: 20220714
  Transmission Date: 20221026
  Serious: Yes (Hospitalization, Other)
  Sender: FDA-Public Use
  Company Number: US-AMGEN-USASP2022118742

PATIENT
  Age: 71 Year
  Sex: Male

DRUGS (2)
  1. CARFILZOMIB [Suspect]
     Active Substance: CARFILZOMIB
     Indication: Transplant rejection
     Dosage: UNK
     Route: 065
     Dates: start: 202008
  2. PLASMA-PLEX [Concomitant]
     Active Substance: PLASMA PROTEIN FRACTION (HUMAN)
     Indication: Transplant rejection
     Route: 065

REACTIONS (5)
  - Pulmonary toxicity [Unknown]
  - Respiratory failure [Unknown]
  - Hypertensive emergency [Unknown]
  - Renal failure [Recovered/Resolved]
  - Off label use [Unknown]
